FAERS Safety Report 7966003-5 (Version None)
Quarter: 2011Q4

REPORT INFORMATION
  Report Type: 
  Country: None (occurrence: None)
  Receive Date: 20111208
  Receipt Date: 20111201
  Transmission Date: 20120403
  Serious: Yes (Other)
  Sender: FDA-Public Use
  Company Number: CHPA2011US017239

PATIENT
  Age: 58 Year
  Sex: Male

DRUGS (4)
  1. DRUG THERAPY NOS [Suspect]
     Indication: INTESTINAL MASS
     Dosage: UNK, UNK
  2. BENEFIBER W/ WHEAT DEXTRIN [Suspect]
     Dosage: 9 HEAPING TSP, BID
     Route: 048
  3. BENEFIBER W/ WHEAT DEXTRIN [Suspect]
     Indication: INTESTINAL MASS
     Dosage: 1 TSP, UNK
     Route: 048
  4. LISINOPRIL [Concomitant]
     Indication: HYPERTENSION
     Dosage: UNK, UNK

REACTIONS (6)
  - CHRONIC FATIGUE SYNDROME [None]
  - CONCOMITANT DISEASE AGGRAVATED [None]
  - OFF LABEL USE [None]
  - OVERDOSE [None]
  - UNDERDOSE [None]
  - HYPERTENSION [None]
